FAERS Safety Report 7510337-5 (Version None)
Quarter: 2011Q2

REPORT INFORMATION
  Report Type: 
  Country: None (occurrence: None)
  Receive Date: 20110527
  Receipt Date: 20110523
  Transmission Date: 20111010
  Serious: Yes (Death, Other)
  Sender: FDA-Public Use
  Company Number: AU-PFIZER INC-2011115204

PATIENT
  Age: 28 Year
  Sex: Male

DRUGS (5)
  1. METHYLENEDIOXYMETHAMPHETAMINE [Interacting]
  2. TETRAHYDROCANNABINOL [Interacting]
  3. SERTRALINE HYDROCHLORIDE [Suspect]
     Dosage: UNK
  4. ETHANOL [Interacting]
  5. METHAMPHETAMINE [Interacting]

REACTIONS (6)
  - TOXICITY TO VARIOUS AGENTS [None]
  - ROAD TRAFFIC ACCIDENT [None]
  - HEAD INJURY [None]
  - SEROTONIN SYNDROME [None]
  - BACK INJURY [None]
  - DRUG INTERACTION [None]
